FAERS Safety Report 18267435 (Version 3)
Quarter: 2021Q4

REPORT INFORMATION
  Report Type: Other
  Country: GB (occurrence: GB)
  Receive Date: 20200915
  Receipt Date: 20211229
  Transmission Date: 20220303
  Serious: Yes (Other)
  Sender: FDA-Public Use
  Company Number: GB-ZENTIVA-2020-ZT-015530

PATIENT
  Age: 68 Year
  Sex: Male

DRUGS (4)
  1. SOLIFENACIN [Interacting]
     Active Substance: SOLIFENACIN
     Indication: Prostate cancer
     Dosage: UNK UNK, UNKNOWN FREQ.
     Route: 065
     Dates: end: 20200906
  2. TAMSULOSIN [Interacting]
     Active Substance: TAMSULOSIN
     Indication: Prostate cancer
     Route: 048
     Dates: end: 20200906
  3. AMLODIPINE [Interacting]
     Active Substance: AMLODIPINE BESYLATE
     Indication: Product used for unknown indication
     Dosage: UNK UNK, UNKNOWN FREQ.
     Route: 048
  4. GOSERELIN [Concomitant]
     Active Substance: GOSERELIN
     Indication: Product used for unknown indication
     Dosage: UNK UNK, UNKNOWN FREQ.
     Route: 065

REACTIONS (8)
  - Dyspnoea [Not Recovered/Not Resolved]
  - Hypertensive crisis [Not Recovered/Not Resolved]
  - Blood pressure fluctuation [Not Recovered/Not Resolved]
  - Blood pressure increased [Unknown]
  - Migraine [Not Recovered/Not Resolved]
  - Cluster headache [Not Recovered/Not Resolved]
  - Drug interaction [Recovered/Resolved]
  - Off label use [Unknown]
